FAERS Safety Report 24669245 (Version 2)
Quarter: 2024Q4

REPORT INFORMATION
  Report Type: Report from Study
  Country: JP (occurrence: JP)
  Receive Date: 20241127
  Receipt Date: 20241201
  Transmission Date: 20250115
  Serious: Yes (Death)
  Sender: JOHNSON AND JOHNSON
  Company Number: JP-JNJFOC-20241163850

PATIENT
  Age: 57 Year
  Sex: Male

DRUGS (3)
  1. TREMFYA [Suspect]
     Active Substance: GUSELKUMAB
     Indication: Psoriasis
     Dosage: FORM OF ADMIN - INJECTION??DOSE UNKNOWN
     Route: 058
     Dates: start: 201810, end: 202106
  2. TREMFYA [Suspect]
     Active Substance: GUSELKUMAB
     Dosage: FORM OF ADMIN - INJECTION?DOSE UNKNOWN
     Route: 058
     Dates: start: 202309
  3. TREMFYA [Suspect]
     Active Substance: GUSELKUMAB

REACTIONS (1)
  - Lung adenocarcinoma [Fatal]

NARRATIVE: CASE EVENT DATE: 20210101
